FAERS Safety Report 5377790-7 (Version None)
Quarter: 2007Q3

REPORT INFORMATION
  Report Type: 
  Country: None (occurrence: None)
  Receive Date: 20070703
  Receipt Date: 20070621
  Transmission Date: 20080115
  Serious: Yes (Hospitalization)
  Sender: FDA-Public Use
  Company Number: DE-PFIZER INC-2007052414

PATIENT
  Sex: Male
  Weight: 81 kg

DRUGS (6)
  1. CHAMPIX [Suspect]
     Indication: EX-SMOKER
     Route: 048
     Dates: start: 20070101, end: 20070101
  2. ZYPREXA [Interacting]
     Indication: SCHIZOPHRENIA
     Dosage: DAILY DOSE:30MG
  3. ZYPREXA [Interacting]
     Indication: PSYCHOTIC DISORDER
  4. ZYPREXA [Interacting]
     Indication: BORDERLINE PERSONALITY DISORDER
  5. SEROQUEL [Interacting]
     Indication: SCHIZOPHRENIA
     Dosage: DAILY DOSE:450MG
     Route: 048
  6. SEROQUEL [Interacting]
     Indication: PSYCHOTIC DISORDER

REACTIONS (1)
  - DRUG INTERACTION [None]
